FAERS Safety Report 15547358 (Version 1)
Quarter: 2018Q4

REPORT INFORMATION
  Report Type: Spontaneous
  Country: ES (occurrence: ES)
  Receive Date: 20181024
  Receipt Date: 20181024
  Transmission Date: 20190205
  Serious: Yes (Other)
  Sender: FDA-Public Use
  Company Number: ES-TEVA-2018-ES-967922

PATIENT
  Age: 80 Year
  Sex: Female

DRUGS (12)
  1. HIERRO SULFATO 105 MG 30 COMPRIMIDOS LIBERACI?N MODIFICADA [Concomitant]
     Indication: ANAEMIA
     Route: 048
     Dates: start: 20180815
  2. EUTIROX 125 MICROGRAMOS COMPRIMIDOS , 100 COMPRIMIDOS [Concomitant]
     Indication: HYPOTHYROIDISM
     Dosage: 1 DOSAGE FORMS DAILY;
     Route: 048
     Dates: start: 20140219
  3. IRBESART?N 300 MG COMPRIMIDO [Concomitant]
     Indication: HYPERTENSION
     Dosage: 1 DOSAGE FORMS DAILY;
     Route: 048
     Dates: start: 20180815
  4. FUROSEMIDA 40 MG 30 COMPRIMIDOS [Concomitant]
     Indication: CARDIAC FAILURE
     Dosage: 40 MILLIGRAM DAILY;
     Route: 048
     Dates: start: 20161025
  5. CARVEDILOL RATIOPHARM 25 MG COMPRIMIDOS EFG , 28 COMPRIMIDOS [Concomitant]
     Indication: HYPERTENSION
     Route: 048
     Dates: start: 20111114
  6. DOXAZOSINA 4 MG 28 COMPRIMIDOS [Concomitant]
     Indication: HYPERTENSION
     Route: 048
     Dates: start: 20180814
  7. METFORMINA 850 MG 50 COMPRIMIDOS [Concomitant]
     Indication: DIABETES MELLITUS
     Route: 048
     Dates: start: 20180814
  8. PARACETAMOL KERN PHARMA 1 G COMPRIMIDOS EFG, 40 COMPRIMIDOS [Concomitant]
     Indication: GENERAL SYMPTOM
     Route: 048
     Dates: start: 20111114
  9. TRAZODONA 100 MG 60 COMPRIMIDOS [Concomitant]
     Indication: INSOMNIA
     Dosage: 1 DOSAGE FORMS DAILY;
     Route: 048
     Dates: start: 20111114
  10. LEVOFLOXACINO (2791A) [Suspect]
     Active Substance: LEVOFLOXACIN
     Indication: ARTHRITIS INFECTIVE
     Dosage: 750 MILLIGRAM DAILY;
     Route: 042
     Dates: start: 20180715, end: 20180801
  11. PAROXETINA  MYLAN 20 MG COMPRIMIDOS RECUBIERTOS CON PELICULA EFG , 28 [Concomitant]
     Indication: ADJUSTMENT DISORDER WITH DEPRESSED MOOD
     Dosage: 30 MILLIGRAM DAILY;
     Route: 048
     Dates: start: 20111115
  12. OMEPRAZOL SANDOZ FARMACEUTICA 20 MG CAPSULAS DURAS GASTRORRESISTENTES [Concomitant]
     Indication: GASTROOESOPHAGEAL REFLUX DISEASE
     Route: 048
     Dates: start: 20111115

REACTIONS (2)
  - Haemolytic anaemia [Recovered/Resolved]
  - Renal failure [Recovered/Resolved]

NARRATIVE: CASE EVENT DATE: 20180820
